FAERS Safety Report 6203554-8 (Version None)
Quarter: 2009Q2

REPORT INFORMATION
  Report Type: 
  Country: None (occurrence: None)
  Receive Date: 20090527
  Receipt Date: 20090525
  Transmission Date: 20091009
  Serious: Yes (Other)
  Sender: FDA-Public Use
  Company Number: DE-BRISTOL-MYERS SQUIBB COMPANY-14636062

PATIENT
  Age: 67 Year
  Sex: Female

DRUGS (6)
  1. ABILIFY [Suspect]
     Dosage: IN THE MORNING
  2. VENLAFAXINE HCL [Concomitant]
  3. ASPIRIN [Concomitant]
  4. METOPROLOL [Concomitant]
  5. SIMVASTATIN [Concomitant]
  6. DELIX [Concomitant]
     Dosage: RAMIPRIL + HCT

REACTIONS (3)
  - CONSTIPATION [None]
  - CONUS MEDULLARIS SYNDROME [None]
  - MYOCARDIAL INFARCTION [None]
